FAERS Safety Report 16892539 (Version 1)
Quarter: 2019Q4

REPORT INFORMATION
  Report Type: Spontaneous
  Country: TR (occurrence: TR)
  Receive Date: 20191007
  Receipt Date: 20191007
  Transmission Date: 20200122
  Serious: No
  Sender: FDA-Public Use
  Company Number: TR-TOLMAR, INC.-19TR000295

PATIENT
  Age: 70 Year
  Sex: Male

DRUGS (2)
  1. ELIGARD [Suspect]
     Active Substance: LEUPROLIDE ACETATE
     Dosage: 45 MILLIGRAM, EVERY 6 MONTHS
     Route: 058
     Dates: start: 20190918
  2. ELIGARD [Suspect]
     Active Substance: LEUPROLIDE ACETATE
     Indication: PROSTATE CANCER
     Dosage: 45 MILLIGRAM, EVERY 6 MONTHS
     Route: 058
     Dates: start: 20190220

REACTIONS (2)
  - Intercepted product preparation error [None]
  - Product physical consistency issue [None]

NARRATIVE: CASE EVENT DATE: 20190912
